FAERS Safety Report 9715188 (Version 2)
Quarter: 2013Q4

REPORT INFORMATION
  Report Type: Spontaneous
  Country: US (occurrence: US)
  Receive Date: 20131126
  Receipt Date: 20131126
  Transmission Date: 20140711
  Serious: Yes (Hospitalization)
  Sender: FDA-Public Use
  Company Number: US-BAXTER-2013BAX045963

PATIENT
  Sex: Female

DRUGS (5)
  1. DIANEAL LOW CALCIUM [Suspect]
     Indication: PERITONEAL DIALYSIS
     Route: 033
     Dates: start: 20130823
  2. DIANEAL LOW CALCIUM [Suspect]
     Route: 033
     Dates: start: 20130823
  3. DIANEAL LOW CALCIUM [Suspect]
     Indication: PERITONEAL DIALYSIS
     Route: 033
     Dates: start: 20130823
  4. ISOSORBIDE MONONITRATE [Concomitant]
     Indication: HYPERTENSION
     Route: 048
  5. HYDRALAZINE [Concomitant]
     Indication: HYPERTENSION
     Route: 048

REACTIONS (5)
  - Upper limb fracture [Recovering/Resolving]
  - Fall [Recovering/Resolving]
  - Hypophagia [Recovering/Resolving]
  - Blood albumin decreased [Recovering/Resolving]
  - Hypotension [Recovering/Resolving]
